FAERS Safety Report 7087293-X (Version None)
Quarter: 2010Q4

REPORT INFORMATION
  Report Type: 
  Country: None (occurrence: None)
  Receive Date: 20101107
  Receipt Date: 20101019
  Transmission Date: 20110411
  Serious: Yes (Hospitalization, Other)
  Sender: FDA-Public Use
  Company Number: PHHY2010DE70917

PATIENT
  Sex: Male
  Weight: 75 kg

DRUGS (14)
  1. AFINITOR [Suspect]
     Indication: METASTATIC RENAL CELL CARCINOMA
     Dosage: 10 MG/DAY
     Route: 048
     Dates: start: 20091210, end: 20100901
  2. PARACETAMOL [Concomitant]
     Dosage: UNK
  3. METAMIZOL [Concomitant]
  4. PIPERACILLIN AND TAZOBACTAM [Concomitant]
     Dosage: UNK
     Dates: start: 20100901, end: 20100901
  5. AVELOX [Concomitant]
     Dosage: UNK
     Dates: start: 20100901, end: 20100901
  6. IMIPENEM [Concomitant]
     Dosage: UNK
  7. BUPRENORPHINE [Concomitant]
  8. THEOPHYLLIN - SLOW RELEASE ^HEUMANN^ [Concomitant]
     Dosage: 375 MG, UNK
  9. BUDESONIDE [Concomitant]
     Dosage: UNK
  10. DEXAMETHASONE [Concomitant]
     Dosage: 12 MG, UNK
  11. PANTOPRAZOLE [Concomitant]
     Dosage: 40 MG, UNK
  12. LEVOTHYROXINE SODIUM [Concomitant]
     Dosage: 50 UG, UNK
  13. TORASEMIDE [Concomitant]
     Dosage: 5 MG, UNK
     Route: 048
  14. CARVEDILOL [Concomitant]
     Dosage: 12.5 MG, UNK

REACTIONS (16)
  - ASTHENIA [None]
  - BLOOD CREATININE INCREASED [None]
  - BRONCHOALVEOLAR LAVAGE [None]
  - DISTURBANCE IN ATTENTION [None]
  - FATIGUE [None]
  - IMPAIRED GASTRIC EMPTYING [None]
  - INFLAMMATION [None]
  - LYMPHANGIOSIS CARCINOMATOSA [None]
  - MALIGNANT NEOPLASM PROGRESSION [None]
  - MEMORY IMPAIRMENT [None]
  - MOVEMENT DISORDER [None]
  - PLEURAL EFFUSION [None]
  - PNEUMONIA PRIMARY ATYPICAL [None]
  - PYREXIA [None]
  - RENAL FAILURE ACUTE [None]
  - VOMITING [None]
